FAERS Safety Report 24296386 (Version 1)
Quarter: 2024Q3

REPORT INFORMATION
  Report Type: Spontaneous
  Country: US (occurrence: US)
  Receive Date: 20240909
  Receipt Date: 20240909
  Transmission Date: 20241016
  Serious: Yes (Other)
  Sender: Haleon PLC
  Company Number: US-HALEON-2195102

PATIENT
  Age: 37 Year
  Sex: Female

DRUGS (52)
  1. DICLOFENAC [Suspect]
     Active Substance: DICLOFENAC
     Indication: Psoriatic arthropathy
     Dosage: DICLOFENAC SODIUM SOPM
     Route: 065
  2. MUPIROCIN [Suspect]
     Active Substance: MUPIROCIN
     Indication: Psoriatic arthropathy
     Route: 065
  3. TRIAMCINOLONE [Suspect]
     Active Substance: TRIAMCINOLONE
     Indication: Psoriatic arthropathy
     Dosage: PASTE TRIAMCINOLONE ACETONIDE
     Route: 065
  4. COSENTYX [Suspect]
     Active Substance: SECUKINUMAB
     Indication: Psoriatic arthropathy
     Dosage: 28D
     Route: 058
  5. COSENTYX [Suspect]
     Active Substance: SECUKINUMAB
     Indication: Ankylosing spondylitis
     Dosage: 14D
     Route: 058
  6. METHOTREXATE [Suspect]
     Active Substance: METHOTREXATE
     Indication: Psoriatic arthropathy
     Route: 065
  7. FLUOCINONIDE [Suspect]
     Active Substance: FLUOCINONIDE
     Indication: Psoriatic arthropathy
     Route: 065
  8. HALOBETASOL [Suspect]
     Active Substance: HALOBETASOL
     Indication: Psoriatic arthropathy
     Route: 065
  9. ALPRAZOLAM [Suspect]
     Active Substance: ALPRAZOLAM
     Indication: Psoriatic arthropathy
     Route: 065
  10. FLUOXETINE [Suspect]
     Active Substance: FLUOXETINE HYDROCHLORIDE
     Indication: Psoriatic arthropathy
     Route: 065
  11. FOLIC ACID [Suspect]
     Active Substance: FOLIC ACID
     Indication: Psoriatic arthropathy
     Route: 065
  12. GABAPENTIN [Suspect]
     Active Substance: GABAPENTIN
     Indication: Psoriatic arthropathy
     Route: 065
  13. GINKGO [Suspect]
     Active Substance: GINKGO
     Indication: Psoriatic arthropathy
     Route: 065
  14. VITAMINS [Suspect]
     Active Substance: VITAMINS
     Indication: Psoriatic arthropathy
     Route: 065
  15. OXYCODONE [Suspect]
     Active Substance: OXYCODONE
     Indication: Psoriatic arthropathy
     Dosage: OXYCODONE-ACETAMINOPHEN
     Route: 065
  16. TIZANIDINE [Suspect]
     Active Substance: TIZANIDINE
     Indication: Psoriatic arthropathy
     Route: 065
  17. VALACYCLOVIR [Suspect]
     Active Substance: VALACYCLOVIR HYDROCHLORIDE
     Indication: Psoriatic arthropathy
     Route: 065
  18. VITAMIN B [Suspect]
     Active Substance: VITAMIN B
     Indication: Psoriatic arthropathy
     Route: 065
  19. ZINC [Suspect]
     Active Substance: ZINC
     Indication: Psoriatic arthropathy
     Route: 065
  20. ESTRADIOL [Suspect]
     Active Substance: ESTRADIOL
     Indication: Psoriatic arthropathy
     Route: 065
  21. NALTREXONE [Suspect]
     Active Substance: NALTREXONE
     Indication: Psoriatic arthropathy
     Route: 065
  22. VITAMIN A [Suspect]
     Active Substance: VITAMIN A
     Indication: Psoriatic arthropathy
     Route: 065
  23. FLUOCINOLONE [Suspect]
     Active Substance: FLUOCINOLONE
     Indication: Psoriatic arthropathy
     Dosage: OIL
     Route: 065
  24. HALOBETASOL PROPIONATE [Suspect]
     Active Substance: HALOBETASOL PROPIONATE
     Indication: Psoriatic arthropathy
     Route: 065
  25. CLOBETASOL PROPIONATE [Suspect]
     Active Substance: CLOBETASOL PROPIONATE
     Indication: Psoriatic arthropathy
     Dosage: FOAM
     Route: 065
  26. ALBUTEROL [Suspect]
     Active Substance: ALBUTEROL
     Indication: Psoriatic arthropathy
     Route: 065
  27. IBUPROFEN [Suspect]
     Active Substance: IBUPROFEN
     Indication: Psoriatic arthropathy
     Route: 065
  28. PSEUDOEPHEDRINE [Suspect]
     Active Substance: PSEUDOEPHEDRINE
     Indication: Psoriatic arthropathy
     Route: 065
  29. PROMETHAZINE [Suspect]
     Active Substance: PROMETHAZINE HYDROCHLORIDE
     Indication: Psoriatic arthropathy
     Dosage: (PROMETHAZINE-DEXTROMETHORPHAN)
     Route: 065
  30. TEMAZEPAM [Suspect]
     Active Substance: TEMAZEPAM
     Indication: Psoriatic arthropathy
     Route: 065
  31. ZOLPIDEM [Suspect]
     Active Substance: ZOLPIDEM TARTRATE
     Indication: Psoriatic arthropathy
     Route: 065
  32. KETOROLAC [Suspect]
     Active Substance: KETOROLAC TROMETHAMINE
     Indication: Psoriatic arthropathy
     Dosage: KETOROLAC TROMETHAMINE
     Route: 065
  33. BETAMETHASONE [Suspect]
     Active Substance: BETAMETHASONE
     Indication: Psoriatic arthropathy
     Dosage: 6 MG/CC
     Route: 065
  34. LIDOCAINE [Suspect]
     Active Substance: LIDOCAINE
     Indication: Psoriatic arthropathy
     Route: 065
  35. CLOBETASOL [Suspect]
     Active Substance: CLOBETASOL
     Indication: Psoriatic arthropathy
     Dosage: FOAM
     Route: 065
  36. NYSTATIN [Suspect]
     Active Substance: NYSTATIN
     Indication: Psoriatic arthropathy
     Route: 065
  37. CLONAZEPAM [Suspect]
     Active Substance: CLONAZEPAM
     Route: 065
  38. SULFASALAZINE [Suspect]
     Active Substance: SULFASALAZINE
     Indication: Psoriatic arthropathy
     Route: 065
     Dates: start: 20180417
  39. IMURAN [Suspect]
     Active Substance: AZATHIOPRINE
     Indication: Psoriatic arthropathy
     Route: 065
  40. CALCIPOTRIENE [Suspect]
     Active Substance: CALCIPOTRIENE
     Indication: Psoriatic arthropathy
     Dosage: CALCIPOTRIENE-BETAMETHASONE
     Route: 065
  41. ALBUTEROL SULFATE [Suspect]
     Active Substance: ALBUTEROL SULFATE
     Indication: Psoriatic arthropathy
     Dosage: INHALATION USE
     Route: 065
  42. BIOTIN [Suspect]
     Active Substance: BIOTIN
     Indication: Psoriatic arthropathy
     Route: 065
  43. ERGOCALCIFEROL [Suspect]
     Active Substance: ERGOCALCIFEROL
     Indication: Psoriatic arthropathy
     Route: 065
  44. IODINE [Suspect]
     Active Substance: IODINE
     Indication: Psoriatic arthropathy
     Route: 065
  45. LEFLUNOMIDE [Suspect]
     Active Substance: LEFLUNOMIDE
     Indication: Psoriatic arthropathy
     Route: 065
  46. LORATADINE [Suspect]
     Active Substance: LORATADINE
     Indication: Psoriatic arthropathy
     Route: 065
  47. MELATONIN [Suspect]
     Active Substance: MELATONIN
     Indication: Psoriatic arthropathy
     Route: 065
  48. MINOCYCLINE [Suspect]
     Active Substance: MINOCYCLINE HYDROCHLORIDE
     Indication: Psoriatic arthropathy
     Route: 065
  49. COSENTYX [Concomitant]
     Active Substance: SECUKINUMAB
     Indication: Product used for unknown indication
     Route: 065
  50. CETIRIZINE HYDROCHLORIDE [Suspect]
     Active Substance: CETIRIZINE HYDROCHLORIDE
     Indication: Psoriatic arthropathy
     Route: 065
  51. FLUTICASONE [Suspect]
     Active Substance: FLUTICASONE
     Indication: Psoriatic arthropathy
     Route: 065
  52. LEVOCETIRIZINE [Suspect]
     Active Substance: LEVOCETIRIZINE
     Indication: Psoriatic arthropathy
     Route: 065

REACTIONS (31)
  - Psoriatic arthropathy [Unknown]
  - Dyspnoea [Unknown]
  - Cough [Unknown]
  - Wheezing [Unknown]
  - Psoriasis [Unknown]
  - Condition aggravated [Unknown]
  - Ankylosing spondylitis [Unknown]
  - Rectal haemorrhage [Unknown]
  - Back pain [Unknown]
  - Immunodeficiency [Unknown]
  - Alopecia [Recovering/Resolving]
  - Skin warm [Unknown]
  - Arthropathy [Unknown]
  - Oedema [Unknown]
  - Tenderness [Unknown]
  - Dactylitis [Unknown]
  - Spinal osteoarthritis [Unknown]
  - Enthesopathy [Unknown]
  - Gastrointestinal disorder [Unknown]
  - Abdominal discomfort [Unknown]
  - Stress [Unknown]
  - Peripheral swelling [Unknown]
  - Sciatica [Unknown]
  - Drug ineffective [Unknown]
  - Product use in unapproved indication [Unknown]
  - Treatment failure [Unknown]
  - Arthralgia [Recovering/Resolving]
  - Joint stiffness [Recovering/Resolving]
  - Joint swelling [Recovering/Resolving]
  - Skin disorder [Unknown]
  - Rash [Unknown]
